FAERS Safety Report 8009245-5 (Version None)
Quarter: 2011Q4

REPORT INFORMATION
  Report Type: 
  Country: None (occurrence: None)
  Receive Date: 20111227
  Receipt Date: 20111219
  Transmission Date: 20120403
  Serious: Yes (Death, Life-Threatening, Hospitalization, Disabling)
  Sender: FDA-Public Use
  Company Number: JP-ASTRAZENECA-2011SE77719

PATIENT
  Age: 13879 Day
  Sex: Female

DRUGS (34)
  1. LUVOX [Suspect]
     Route: 065
  2. SEROQUEL [Suspect]
     Route: 048
  3. HALOPERIDOL [Suspect]
     Indication: SCHIZOPHRENIA
     Route: 042
     Dates: start: 20070620, end: 20070628
  4. DORAL [Suspect]
     Indication: SCHIZOPHRENIA
     Route: 048
     Dates: start: 20070627, end: 20070628
  5. SEROQUEL [Suspect]
     Indication: SCHIZOPHRENIA
     Route: 048
     Dates: start: 20070619, end: 20070628
  6. CELMANIL [Suspect]
     Indication: SCHIZOPHRENIA
     Route: 048
     Dates: start: 20070619, end: 20070628
  7. PROMETHAZINE HCL [Suspect]
     Route: 048
     Dates: start: 20070619, end: 20070628
  8. VALPROIC ACID [Suspect]
     Indication: SCHIZOPHRENIA
     Route: 048
     Dates: start: 20070625, end: 20070628
  9. PANTOSIN [Suspect]
     Indication: CONSTIPATION
     Route: 048
     Dates: start: 20070626
  10. AKINETON [Suspect]
     Route: 065
  11. NITRAZEPAM [Suspect]
     Indication: INSOMNIA
     Route: 048
  12. SLOWHEIM [Suspect]
     Route: 048
     Dates: start: 20070627, end: 20070628
  13. LEVOTOMIN [Suspect]
     Indication: SCHIZOPHRENIA
     Route: 042
  14. RISPERDAL [Suspect]
     Route: 048
     Dates: start: 20070619, end: 20070628
  15. ZYPREXA [Suspect]
     Indication: SCHIZOPHRENIA
     Route: 048
     Dates: start: 20070619, end: 20070628
  16. TEGRETOL [Suspect]
     Indication: SCHIZOPHRENIA
     Route: 048
     Dates: start: 20070620, end: 20070628
  17. LAXOBERON [Suspect]
     Indication: CONSTIPATION
     Route: 048
     Dates: start: 20070626
  18. LODOPIN [Suspect]
     Indication: SCHIZOPHRENIA
     Route: 048
     Dates: start: 20070625, end: 20070628
  19. PROMETHAZINE HCL [Suspect]
     Indication: SCHIZOPHRENIA
     Route: 048
  20. SOFMIN AMEL [Suspect]
     Indication: SCHIZOPHRENIA
     Route: 048
     Dates: start: 20070619, end: 20070628
  21. SLOWHEIM [Suspect]
     Indication: SCHIZOPHRENIA
     Route: 048
  22. TOLOPELON [Suspect]
     Indication: SCHIZOPHRENIA
     Route: 042
     Dates: start: 20070619, end: 20070628
  23. MUCOTRON [Suspect]
     Indication: PNEUMONIA
     Route: 048
     Dates: start: 20070622
  24. RILMAZAFONE HYDROCHLORIDE [Suspect]
     Route: 048
  25. DEPAS [Suspect]
     Route: 065
  26. RISPERDAL [Suspect]
     Indication: SCHIZOPHRENIA
     Route: 048
  27. PROMAZINE HYDROCHLORIDE [Suspect]
     Indication: SCHIZOPHRENIA
     Route: 048
     Dates: start: 20070623, end: 20070628
  28. PHENOBARBITAL TAB [Suspect]
     Indication: SCHIZOPHRENIA
     Route: 048
     Dates: start: 20070620, end: 20070628
  29. NITRAZEPAM [Suspect]
     Route: 048
     Dates: start: 20070627, end: 20070628
  30. CLARITHROMYCIN [Suspect]
     Indication: PNEUMONIA
     Route: 048
     Dates: start: 20070622, end: 20070628
  31. LEVOTOMIN [Suspect]
     Route: 042
     Dates: start: 20070619, end: 20070628
  32. ALPRAZOLAM [Suspect]
     Indication: ANXIETY
     Route: 065
  33. SENNOSIDE [Suspect]
     Indication: CONSTIPATION
     Route: 048
     Dates: start: 20070626
  34. MAGNESIUM SULFATE [Suspect]
     Indication: CONSTIPATION
     Route: 048
     Dates: start: 20070626

REACTIONS (5)
  - CARDIO-RESPIRATORY ARREST [None]
  - ILEUS PARALYTIC [None]
  - SEPSIS [None]
  - MULTIPLE DRUG OVERDOSE [None]
  - POSTRESUSCITATION ENCEPHALOPATHY [None]
